FAERS Safety Report 13061024 (Version 1)
Quarter: 2016Q4

REPORT INFORMATION
  Report Type: Spontaneous
  Country: US (occurrence: US)
  Receive Date: 20161226
  Receipt Date: 20161226
  Transmission Date: 20170207
  Serious: Yes (Hospitalization)
  Sender: FDA-Public Use
  Company Number: US-BEH-2016076457

PATIENT
  Sex: Female
  Weight: 63.49 kg

DRUGS (29)
  1. GABAPENTIN. [Concomitant]
     Active Substance: GABAPENTIN
  2. PREDNISONE. [Concomitant]
     Active Substance: PREDNISONE
  3. HIZENTRA [Suspect]
     Active Substance: HUMAN IMMUNOGLOBULIN G
     Dosage: UNK
     Route: 058
  4. VITAMIN D3 [Concomitant]
     Active Substance: CHOLECALCIFEROL
  5. DIPHENHYDRAMINE. [Concomitant]
     Active Substance: DIPHENHYDRAMINE
  6. FLUTICASONE [Concomitant]
     Active Substance: FLUTICASONE\FLUTICASONE PROPIONATE
  7. ACETAMINOPHEN W/HYDROCODONE [Concomitant]
     Active Substance: ACETAMINOPHEN\HYDROCODONE
  8. PANTOPRAZOLE [Concomitant]
     Active Substance: PANTOPRAZOLE SODIUM
  9. METRONIDAZOLE. [Concomitant]
     Active Substance: METRONIDAZOLE
  10. PRAVACHOL [Concomitant]
     Active Substance: PRAVASTATIN SODIUM
  11. SYMBICORT [Concomitant]
     Active Substance: BUDESONIDE\FORMOTEROL FUMARATE DIHYDRATE
  12. HIZENTRA [Suspect]
     Active Substance: HUMAN IMMUNOGLOBULIN G
     Indication: IMMUNODEFICIENCY COMMON VARIABLE
     Dosage: 7 G, QW
     Route: 058
     Dates: start: 20130114
  13. ZETIA [Concomitant]
     Active Substance: EZETIMIBE
  14. ZYRTEC [Concomitant]
     Active Substance: CETIRIZINE HYDROCHLORIDE
  15. SPIRONOLACTONE. [Concomitant]
     Active Substance: SPIRONOLACTONE
  16. COENZYME Q10 [Concomitant]
     Active Substance: UBIDECARENONE
  17. KIRKLANDS CHILDRENS ALLER TEC [Concomitant]
     Active Substance: CETIRIZINE HYDROCHLORIDE
  18. METOPROLOL. [Concomitant]
     Active Substance: METOPROLOL
  19. PROTONIX [Concomitant]
     Active Substance: PANTOPRAZOLE SODIUM
  20. BIOTIN [Concomitant]
     Active Substance: BIOTIN
  21. HIZENTRA [Suspect]
     Active Substance: HUMAN IMMUNOGLOBULIN G
     Dosage: UNK
     Route: 058
  22. PROAIR HFA [Concomitant]
     Active Substance: ALBUTEROL SULFATE
  23. LYRICA [Concomitant]
     Active Substance: PREGABALIN
  24. NIACIN FLUSH FREE [Concomitant]
  25. EPIPEN [Concomitant]
     Active Substance: EPINEPHRINE
  26. ROPINIROLE. [Concomitant]
     Active Substance: ROPINIROLE
  27. PATANASE [Concomitant]
     Active Substance: OLOPATADINE HYDROCHLORIDE
  28. ASPIRIN. [Concomitant]
     Active Substance: ASPIRIN
  29. BACTRIM DS [Concomitant]
     Active Substance: SULFAMETHOXAZOLE\TRIMETHOPRIM

REACTIONS (3)
  - Upper respiratory tract infection [Unknown]
  - Hiatus hernia [Unknown]
  - Gastrointestinal haemorrhage [Unknown]
